FAERS Safety Report 9882253 (Version 2)
Quarter: 2014Q4

REPORT INFORMATION
  Report Type: Report from Study
  Country: DE (occurrence: DE)
  Receive Date: 20140207
  Receipt Date: 20141230
  Transmission Date: 20150529
  Serious: Yes (Hospitalization)
  Sender: FDA-Public Use
  Company Number: DE-INCYTE CORPORATION-2014IN000241

PATIENT
  Sex: Female
  Weight: 62 kg

DRUGS (15)
  1. INCB018424 [Suspect]
     Active Substance: RUXOLITINIB
     Dosage: 10 MG, QD
     Route: 048
     Dates: start: 20131024, end: 20131219
  2. INCB018424 [Suspect]
     Active Substance: RUXOLITINIB
     Dosage: 5 MG, QD
     Route: 048
     Dates: start: 20131220, end: 20140109
  3. PANTOPRAZOLE [Concomitant]
     Active Substance: PANTOPRAZOLE SODIUM
     Indication: GASTRIC DISORDER
     Dosage: 20 MG, UNK
     Route: 065
     Dates: start: 20121206, end: 20131025
  4. PASPERTIN                               /GFR/ [Concomitant]
     Indication: NAUSEA
     Dosage: 90 GTT, UNK
     Route: 065
     Dates: start: 20130801
  5. INCB018424 [Suspect]
     Active Substance: RUXOLITINIB
     Dosage: 10 MG, QD
     Route: 048
     Dates: start: 20130802, end: 20130916
  6. INCB018424 [Suspect]
     Active Substance: RUXOLITINIB
     Dosage: 5 MG, QD
     Route: 048
     Dates: start: 20131004, end: 20131023
  7. SAROTEN [Concomitant]
     Active Substance: AMITRIPTYLINE
     Indication: DEPRESSION
     Dosage: 75 MG, UNK
     Route: 065
     Dates: start: 19980601
  8. INCB018424 [Suspect]
     Active Substance: RUXOLITINIB
     Indication: MYELOFIBROSIS
     Dosage: 30 MG, DAILY
     Route: 048
     Dates: start: 20130522
  9. AQUAPHOR [Concomitant]
     Active Substance: PETROLATUM
     Indication: HYPERTENSION
     Dosage: 5 OT, UNK
     Route: 065
     Dates: start: 20121206, end: 20131024
  10. ALLOPURINOL. [Concomitant]
     Active Substance: ALLOPURINOL
     Indication: GOUT
     Dosage: 150 OT, UNK
     Route: 065
     Dates: start: 20121206
  11. INCB018424 [Suspect]
     Active Substance: RUXOLITINIB
     Dosage: 5 MG, QD
     Route: 048
     Dates: start: 20130729, end: 20130801
  12. ASPIRIN. [Concomitant]
     Active Substance: ASPIRIN
     Indication: CEREBROVASCULAR ACCIDENT
     Dosage: 200 MG, UNK
     Route: 065
     Dates: start: 19980517
  13. INCB018424 [Suspect]
     Active Substance: RUXOLITINIB
     Dosage: 20 MG, DAILY
     Route: 048
     Dates: start: 20130715, end: 20130728
  14. INCB018424 [Suspect]
     Active Substance: RUXOLITINIB
     Dosage: 5 MG, QD
     Route: 048
     Dates: start: 20140122
  15. CARMEN [Concomitant]
     Active Substance: LERCANIDIPINE
     Indication: HYPERTENSION
     Dosage: 10 MG, UNK
     Route: 065
     Dates: start: 19970805

REACTIONS (1)
  - Colitis [Recovered/Resolved]

NARRATIVE: CASE EVENT DATE: 20130917
